FAERS Safety Report 17706312 (Version 1)
Quarter: 2020Q2

REPORT INFORMATION
  Report Type: Spontaneous
  Country: DE (occurrence: DE)
  Receive Date: 20200424
  Receipt Date: 20200424
  Transmission Date: 20200714
  Serious: Yes (Other)
  Sender: FDA-Public Use
  Company Number: NVSC2020DE107606

PATIENT

DRUGS (2)
  1. OLANZAPINE. [Suspect]
     Active Substance: OLANZAPINE
     Indication: ANXIETY DISORDER
     Dosage: UNK
     Route: 065
  2. OLANZAPIN GLENMARK [Suspect]
     Active Substance: OLANZAPINE
     Indication: ANXIETY DISORDER
     Dosage: 5 MG, OD (1 INSTANT RELEASE TABLET/DAY)
     Route: 048
     Dates: start: 2019, end: 20191113

REACTIONS (11)
  - Palpitations [Not Recovered/Not Resolved]
  - Libido decreased [Not Recovered/Not Resolved]
  - Alopecia [Recovered/Resolved]
  - Inflammatory marker increased [Recovering/Resolving]
  - Wrong technique in product usage process [Unknown]
  - Sleep disorder [Not Recovered/Not Resolved]
  - Withdrawal syndrome [Not Recovered/Not Resolved]
  - Initial insomnia [Not Recovered/Not Resolved]
  - Product use in unapproved indication [Unknown]
  - Respiratory distress [Not Recovered/Not Resolved]
  - Intentional product misuse [Unknown]

NARRATIVE: CASE EVENT DATE: 201911
